FAERS Safety Report 23757271 (Version 2)
Quarter: 2024Q2

REPORT INFORMATION
  Report Type: Spontaneous
  Country: US (occurrence: US)
  Receive Date: 20240418
  Receipt Date: 20240620
  Transmission Date: 20240716
  Serious: Yes (Other)
  Sender: FDA-Public Use
  Company Number: US-FreseniusKabi-FK202406067

PATIENT
  Age: 12 Year
  Sex: Female
  Weight: 33.6 kg

DRUGS (2)
  1. DIPRIVAN [Suspect]
     Active Substance: ISOPROPYL ALCOHOL\PROPOFOL
     Indication: Sedative therapy
     Dosage: FORM OF ADMIN: INJECTABLE EMULSION?IV CONTINUOUS INFUSION: 50 ML ? 300 MCG/KG/MIN FROM 08:05-08:43
     Route: 042
     Dates: start: 20240401, end: 20240401
  2. DIPRIVAN [Suspect]
     Active Substance: ISOPROPYL ALCOHOL\PROPOFOL
     Dosage: FORM OF ADMIN: INJECTABLE EMULSION?IV BOLUS: 60 MG AT 08:05
     Dates: start: 20240401, end: 20240401

REACTIONS (8)
  - Airway complication of anaesthesia [Recovered/Resolved]
  - Cough [Recovered/Resolved]
  - Oxygen saturation decreased [Recovered/Resolved]
  - Bronchospasm [Recovered/Resolved]
  - Laryngospasm [Recovered/Resolved]
  - Retching [Recovered/Resolved]
  - Therapeutic product effect decreased [Unknown]
  - Use of accessory respiratory muscles [Recovered/Resolved]

NARRATIVE: CASE EVENT DATE: 20240401
